FAERS Safety Report 11090030 (Version 1)
Quarter: 2015Q2

REPORT INFORMATION
  Report Type: Spontaneous
  Country: AU (occurrence: AU)
  Receive Date: 20150505
  Receipt Date: 20150505
  Transmission Date: 20150821
  Serious: Yes (Other)
  Sender: FDA-Public Use
  Company Number: AU-SUN PHARMACEUTICAL INDUSTRIES LTD-2015RR-96793

PATIENT

DRUGS (1)
  1. METFORMIN [Suspect]
     Active Substance: METFORMIN HYDROCHLORIDE
     Indication: PRODUCT USED FOR UNKNOWN INDICATION
     Dosage: UNK
     Route: 048

REACTIONS (8)
  - Gastrointestinal disorder [Unknown]
  - Overdose [Unknown]
  - Lactic acidosis [Unknown]
  - Bradycardia [Unknown]
  - Hyperlactacidaemia [Unknown]
  - Hypoglycaemia [Unknown]
  - Tachycardia [Unknown]
  - Hypotension [Unknown]
